FAERS Safety Report 8239691-6 (Version None)
Quarter: 2012Q1

REPORT INFORMATION
  Report Type: 
  Country: None (occurrence: None)
  Receive Date: 20120328
  Receipt Date: 20120320
  Transmission Date: 20120608
  Serious: Yes (Other)
  Sender: FDA-Public Use
  Company Number: US-US-EMD SERONO, INC.-7014512

PATIENT
  Sex: Female
  Weight: 58 kg

DRUGS (4)
  1. ZOCOR [Concomitant]
     Indication: PRODUCT USED FOR UNKNOWN INDICATION
  2. REBIF [Suspect]
     Indication: MULTIPLE SCLEROSIS
     Route: 058
     Dates: start: 20070525
  3. ZOLOFT [Concomitant]
     Indication: ANXIETY
  4. AMPYRA [Concomitant]
     Indication: PRODUCT USED FOR UNKNOWN INDICATION

REACTIONS (5)
  - HEPATIC CYST [None]
  - INJECTION SITE ERYTHEMA [None]
  - OSTEOARTHRITIS [None]
  - WEIGHT INCREASED [None]
  - INJECTION SITE PAIN [None]
